FAERS Safety Report 17475192 (Version 1)
Quarter: 2020Q1

REPORT INFORMATION
  Report Type: Spontaneous
  Country: IT (occurrence: IT)
  Receive Date: 20200228
  Receipt Date: 20200228
  Transmission Date: 20200409
  Serious: Yes (Life-Threatening)
  Sender: FDA-Public Use
  Company Number: IT-ASTRAZENECA-2020SE27986

PATIENT
  Age: 51 Year
  Sex: Male

DRUGS (2)
  1. BUDESONIDE/FORMOTEROL [Suspect]
     Active Substance: BUDESONIDE\FORMOTEROL
     Dosage: AS NEEDED
     Route: 055
  2. SALBUTAMOL [Suspect]
     Active Substance: ALBUTEROL
     Dosage: AS NEEDED

REACTIONS (2)
  - Treatment noncompliance [Not Recovered/Not Resolved]
  - Status asthmaticus [Not Recovered/Not Resolved]
